FAERS Safety Report 26045968 (Version 1)
Quarter: 2025Q4

REPORT INFORMATION
  Report Type: Spontaneous
  Country: US (occurrence: US)
  Receive Date: 20251114
  Receipt Date: 20251114
  Transmission Date: 20260117
  Serious: Yes (Other)
  Sender: RANBAXY
  Company Number: US-SUN PHARMACEUTICAL INDUSTRIES INC-2025R1-536423

PATIENT
  Age: 29 Year
  Sex: Female

DRUGS (7)
  1. INSULIN NOS [Suspect]
     Active Substance: INSULIN NOS
     Indication: Hypertriglyceridaemia
     Dosage: 26 UNITS/DAY
     Route: 042
  2. OMEGA 3 [Suspect]
     Active Substance: CAPSAICIN
     Indication: Product used for unknown indication
     Dosage: 3 GRAM, DAILY
     Route: 065
  3. METFORMIN [Suspect]
     Active Substance: METFORMIN HYDROCHLORIDE
     Indication: Diabetes mellitus
     Dosage: 1500 MILLIGRAM, QD
     Route: 065
  4. NIACIN [Suspect]
     Active Substance: NIACIN
     Indication: Pancreatitis
     Dosage: 500 MILLIGRAM, QD
     Route: 065
  5. NIACIN [Suspect]
     Active Substance: NIACIN
     Dosage: 1 GRAM, QD
     Route: 065
  6. NIACIN [Suspect]
     Active Substance: NIACIN
     Dosage: 2000 MILLIGRAM, QD
     Route: 065
  7. LABETALOL [Suspect]
     Active Substance: LABETALOL
     Indication: Blood pressure increased
     Dosage: UNK
     Route: 042

REACTIONS (3)
  - Maternal exposure during pregnancy [Unknown]
  - Premature delivery [Unknown]
  - Pre-eclampsia [Unknown]
